FAERS Safety Report 4863195-1 (Version None)
Quarter: 2005Q4

REPORT INFORMATION
  Report Type: 
  Country: None (occurrence: None)
  Receive Date: 20051201
  Receipt Date: 20050727
  Transmission Date: 20060501
  Serious: No
  Sender: FDA-Public Use
  Company Number: 2005PV000530

PATIENT
  Age: 42 Year
  Sex: Male
  Weight: 104.7809 kg

DRUGS (10)
  1. BYETTA [Suspect]
     Indication: DIABETES MELLITUS NON-INSULIN-DEPENDENT
     Dosage: 5 MCG;BID;SC, 10 MCG;BID;SC
     Route: 058
     Dates: start: 20050706, end: 20050811
  2. BYETTA [Suspect]
     Indication: DIABETES MELLITUS NON-INSULIN-DEPENDENT
     Dosage: 5 MCG;BID;SC, 10 MCG;BID;SC
     Route: 058
     Dates: start: 20050812
  3. ACTOS [Concomitant]
  4. METFORMIN HCL [Concomitant]
  5. LIPITOR [Concomitant]
  6. ASPIRIN [Concomitant]
  7. LOTENSIN [Concomitant]
  8. ESCITALOPRAM OXALATE [Concomitant]
  9. AMARYL [Concomitant]
  10. METFORMIN HCL [Concomitant]

REACTIONS (4)
  - CONSTIPATION [None]
  - DECREASED APPETITE [None]
  - ENERGY INCREASED [None]
  - WEIGHT DECREASED [None]
